FAERS Safety Report 19960589 (Version 1)
Quarter: 2021Q4

REPORT INFORMATION
  Report Type: Spontaneous
  Country: US (occurrence: US)
  Receive Date: 20211015
  Receipt Date: 20211015
  Transmission Date: 20220303
  Serious: No
  Sender: FDA-Public Use
  Company Number: US-ORGANON-O2110USA001100

PATIENT
  Sex: Female

DRUGS (1)
  1. NEXPLANON [Suspect]
     Active Substance: ETONOGESTREL
     Indication: Contraception
     Dosage: 1 IMPLANT

REACTIONS (5)
  - Complication associated with device [Unknown]
  - Incorrect product administration duration [Unknown]
  - Device issue [Unknown]
  - Device deployment issue [Unknown]
  - No adverse event [Unknown]

NARRATIVE: CASE EVENT DATE: 20211011
